FAERS Safety Report 11382220 (Version 1)
Quarter: 2015Q3

REPORT INFORMATION
  Report Type: Spontaneous
  Country: US (occurrence: US)
  Receive Date: 20150811
  Receipt Date: 20150811
  Transmission Date: 20151125
  Serious: No
  Sender: FDA-Public Use
  Company Number: US-ELI_LILLY_AND_COMPANY-US200909001087

PATIENT
  Age: 56 Year
  Sex: Male

DRUGS (1)
  1. CIALIS [Suspect]
     Active Substance: TADALAFIL
     Dosage: 20 MG, AS NEEDED
     Route: 065

REACTIONS (3)
  - Ejaculation delayed [Not Recovered/Not Resolved]
  - Intentional product misuse [Unknown]
  - Therapeutic response prolonged [Unknown]

NARRATIVE: CASE EVENT DATE: 20090813
